FAERS Safety Report 25716659 (Version 3)
Quarter: 2025Q4

REPORT INFORMATION
  Report Type: Spontaneous
  Country: JP (occurrence: JP)
  Receive Date: 20250822
  Receipt Date: 20251029
  Transmission Date: 20260118
  Serious: Yes (Hospitalization, Other)
  Sender: JOHNSON AND JOHNSON
  Company Number: JP-JNJFOC-20250827030

PATIENT
  Age: 8 Decade
  Sex: Male

DRUGS (3)
  1. RYBREVANT [Suspect]
     Active Substance: AMIVANTAMAB-VMJW
     Indication: EGFR gene mutation
     Dosage: DOSE UNKNOWN
     Route: 041
     Dates: start: 20250805, end: 202508
  2. RYBREVANT [Suspect]
     Active Substance: AMIVANTAMAB-VMJW
     Dosage: DOSE UNKNOWN
     Route: 041
     Dates: start: 2025, end: 2025
  3. RYBREVANT [Suspect]
     Active Substance: AMIVANTAMAB-VMJW
     Dosage: DOSE UNKNOWN
     Route: 041
     Dates: start: 2025, end: 2025

REACTIONS (6)
  - Decreased appetite [Recovering/Resolving]
  - Cytopenia [Unknown]
  - Somnolence [Unknown]
  - Hot flush [Recovered/Resolved]
  - Infusion related reaction [Unknown]
  - Blood sodium decreased [Unknown]

NARRATIVE: CASE EVENT DATE: 20250101
